FAERS Safety Report 9048540 (Version 1)
Quarter: 2013Q1

REPORT INFORMATION
  Report Type: Spontaneous
  Country: US (occurrence: None)
  Receive Date: 20130130
  Receipt Date: 20130130
  Transmission Date: 20140127
  Serious: Yes (Hospitalization)
  Sender: FDA-Public Use
  Company Number: None

PATIENT
  Age: 91 Year
  Sex: Female
  Weight: 50 kg

DRUGS (12)
  1. ASA [Suspect]
     Indication: CORONARY ARTERY DISEASE
     Dosage: CHRONIC
     Route: 048
  2. BISMUTH [Concomitant]
  3. NTG [Concomitant]
  4. OMEGA3 [Concomitant]
  5. VIT D3 [Concomitant]
  6. CA CARBONATE [Concomitant]
  7. TRIAMCINOLONE [Concomitant]
  8. VALSARTAN [Concomitant]
  9. POLYETHYLENE [Concomitant]
  10. AMLODIPINE [Concomitant]
  11. LORAZEPAM [Concomitant]
  12. IMIPRAMINE [Concomitant]

REACTIONS (2)
  - Anaemia [None]
  - Lower gastrointestinal haemorrhage [None]
